FAERS Safety Report 11835999 (Version 1)
Quarter: 2015Q4

REPORT INFORMATION
  Report Type: Report from Study
  Country: US (occurrence: US)
  Receive Date: 20151215
  Receipt Date: 20151215
  Transmission Date: 20160305
  Serious: Yes (Other)
  Sender: FDA-Public Use
  Company Number: US-SA-2015SA210511

PATIENT

DRUGS (1)
  1. AMBIEN [Suspect]
     Active Substance: ZOLPIDEM TARTRATE
     Indication: INSOMNIA
     Route: 065

REACTIONS (12)
  - Hiatus hernia [Unknown]
  - Therapeutic response decreased [Unknown]
  - Intervertebral disc protrusion [Unknown]
  - Foot deformity [Unknown]
  - Biopsy skin abnormal [Unknown]
  - Osteoarthritis [Unknown]
  - Hypertension [Unknown]
  - Irritable bowel syndrome [Unknown]
  - Palpitations [Unknown]
  - Systemic lupus erythematosus [Unknown]
  - Arthralgia [Unknown]
  - Asthma [Unknown]
